FAERS Safety Report 5163541-8 (Version None)
Quarter: 2006Q4

REPORT INFORMATION
  Report Type: 
  Country: None (occurrence: None)
  Receive Date: 20061124
  Receipt Date: 20061109
  Transmission Date: 20070319
  Serious: Yes (Death, Hospitalization)
  Sender: FDA-Public Use
  Company Number: 2006140368

PATIENT
  Age: 29 Year
  Sex: Female

DRUGS (1)
  1. INHALED HUMAN INSULIN (INHALED HUMAN INSULIN) [Suspect]
     Dosage: UNKNOWN, PARENTERAL
     Route: 051
     Dates: end: 20050101

REACTIONS (9)
  - BLOOD GLUCOSE DECREASED [None]
  - COMPLETED SUICIDE [None]
  - DRUG EXPOSURE DURING PREGNANCY [None]
  - DRUG SCREEN POSITIVE [None]
  - ELECTROENCEPHALOGRAM ABNORMAL [None]
  - INTENTIONAL DRUG MISUSE [None]
  - LOSS OF CONSCIOUSNESS [None]
  - RENAL FAILURE [None]
  - RHABDOMYOLYSIS [None]
